FAERS Safety Report 9931501 (Version 1)
Quarter: 2014Q1

REPORT INFORMATION
  Report Type: Spontaneous
  Country: US (occurrence: US)
  Receive Date: 20140228
  Receipt Date: 20140228
  Transmission Date: 20141002
  Serious: No
  Sender: FDA-Public Use
  Company Number: US-US-EMD SERONO, INC.-7271393

PATIENT
  Age: 35 Year
  Sex: Female

DRUGS (3)
  1. REBIF [Suspect]
     Indication: MULTIPLE SCLEROSIS
     Route: 058
     Dates: start: 201401
  2. REBIF [Suspect]
     Route: 058
     Dates: start: 201401
  3. REBIF [Suspect]
     Dates: start: 201402

REACTIONS (3)
  - Muscle spasticity [Unknown]
  - Muscle tightness [Unknown]
  - Fatigue [Unknown]
